FAERS Safety Report 24207828 (Version 1)
Quarter: 2024Q3

REPORT INFORMATION
  Report Type: Other
  Country: GB (occurrence: GB)
  Receive Date: 20240814
  Receipt Date: 20240814
  Transmission Date: 20241016
  Serious: Yes (Other)
  Sender: GLENMARK
  Company Number: GB-MHRA-TPP20640899C6519831YC1722347811120

PATIENT

DRUGS (7)
  1. EZETIMIBE [Suspect]
     Active Substance: EZETIMIBE
     Indication: Blood cholesterol abnormal
     Dosage: 10 MILLIGRAM, OD, (ONE TABLET TO BE TAKEN ONCE A DAY FOR CHOLESTEROL)
     Route: 065
     Dates: start: 20240716
  2. BEMPEDOIC ACID [Suspect]
     Active Substance: BEMPEDOIC ACID
     Indication: Ill-defined disorder
     Dosage: 180 MILLIGRAM, OD, TAKE ONE TABLET ONCE DAILY
     Route: 065
     Dates: start: 20240517, end: 20240716
  3. ZOPICLONE [Concomitant]
     Active Substance: ZOPICLONE
     Indication: Sleep disorder
     Dosage: UNK, TAKE ONE AT NIGHT TO AID SLEEP AS REQUIRED (SHO...
     Route: 065
     Dates: start: 20240715, end: 20240729
  4. LANSOPRAZOLE [Concomitant]
     Active Substance: LANSOPRAZOLE
     Indication: Ill-defined disorder
     Dosage: 1 DOSAGE FORM, OD, (ONE CAPSULE TO BE TAKEN ONCE A DAY)
     Route: 065
     Dates: start: 20220818
  5. ACETAMINOPHEN [Concomitant]
     Active Substance: ACETAMINOPHEN
     Indication: Ill-defined disorder
     Dosage: UNK, (ONE -TWO TABLETS TO BE TAKEN UPTO A MAXIMUM OF ...)
     Route: 065
     Dates: start: 20230719
  6. BISOPROLOL [Concomitant]
     Active Substance: BISOPROLOL\BISOPROLOL FUMARATE
     Indication: Cardiac disorder
     Dosage: 1 DOSAGE FORM, PRN, (ONE TABLET TO BE TAKEN IF NEEDED FOR FAST HEART...)
     Route: 065
     Dates: start: 20231124
  7. APIXABAN [Concomitant]
     Active Substance: APIXABAN
     Indication: Ill-defined disorder
     Dosage: 1 DOSAGE FORM, BID, ONE TABLET  TO BE TAKEN TWICE A DAY TO THIN BLO...
     Route: 065
     Dates: start: 20240318

REACTIONS (3)
  - Muscle fatigue [Recovered/Resolved]
  - Pollakiuria [Recovered/Resolved]
  - Dyspepsia [Recovered/Resolved]

NARRATIVE: CASE EVENT DATE: 20240716
